FAERS Safety Report 10048445 (Version 1)
Quarter: 2014Q1

REPORT INFORMATION
  Report Type: Spontaneous
  Country: US (occurrence: US)
  Receive Date: 20140331
  Receipt Date: 20140331
  Transmission Date: 20141002
  Serious: Yes (Other)
  Sender: FDA-Public Use
  Company Number: US-BAYER-2014-043222

PATIENT
  Sex: Female

DRUGS (19)
  1. BAYER GENUINE ASPIRIN ORIGINAL STRENGTH [Suspect]
  2. AMANTADIN [Concomitant]
  3. AUGMENTIN [Concomitant]
  4. AZITHROMYCIN [Concomitant]
  5. CELEBREX [Concomitant]
  6. CODEINE [Concomitant]
  7. CRESTOR [Concomitant]
  8. ERYTHROMYCIN [Concomitant]
  9. IODINE [Concomitant]
  10. LIPITOR [Concomitant]
  11. NAPROSYN [Concomitant]
  12. PRAVASTATIN [Concomitant]
  13. ROSUVASTATIN [Concomitant]
  14. XOLAIR [Concomitant]
  15. LIDOCAIN [Concomitant]
  16. AVELOX [Concomitant]
  17. MEDROL [Concomitant]
  18. MOTRIN [Concomitant]
  19. LASIX [Concomitant]

REACTIONS (3)
  - Rectal haemorrhage [None]
  - Drug hypersensitivity [None]
  - Dyspepsia [None]
